FAERS Safety Report 14354465 (Version 2)
Quarter: 2018Q1

REPORT INFORMATION
  Report Type: Spontaneous
  Country: US (occurrence: US)
  Receive Date: 20180105
  Receipt Date: 20180115
  Transmission Date: 20180509
  Serious: Yes (Other)
  Sender: FDA-Public Use
  Company Number: US-MALLINCKRODT-T201705491

PATIENT
  Age: 57 Year
  Sex: Male

DRUGS (17)
  1. OXYCODONE [Suspect]
     Active Substance: OXYCODONE
     Indication: BREAKTHROUGH PAIN
     Dosage: 10 MG, FOR EVERY 4-HOURS AS NEEDED
     Route: 048
  2. FENTANYL. [Concomitant]
     Active Substance: FENTANYL
     Indication: BREAKTHROUGH PAIN
     Dosage: 150 MCG/HR
     Route: 062
  3. HYDROMORPHONE [Concomitant]
     Active Substance: HYDROMORPHONE
     Indication: BREAKTHROUGH PAIN
     Dosage: 2-4 MG, THRICE DAILY
     Route: 048
  4. HYDROMORPHONE [Concomitant]
     Active Substance: HYDROMORPHONE
     Dosage: 1.5 MG/HOUR WITH 2-4 MG ( SUBCUTANEOUS DRIP)
     Route: 042
  5. HYDROMORPHONE [Concomitant]
     Active Substance: HYDROMORPHONE
     Dosage: UNK
  6. HYDROMORPHONE [Concomitant]
     Active Substance: HYDROMORPHONE
     Dosage: INCREASED TO 4.5 MG/HOUR WITH 2-4 MG ( SUBCUTANEOUS DRIP)
     Route: 042
  7. HYDROMORPHONE [Concomitant]
     Active Substance: HYDROMORPHONE
     Dosage: 6 MG, FOR EVERY 2 HOURS, AS NEEDED
     Route: 048
  8. METHADONE [Suspect]
     Active Substance: METHADONE HYDROCHLORIDE
     Dosage: 30 MG, THRICE DAILY
     Route: 048
  9. HYDROMORPHONE [Concomitant]
     Active Substance: HYDROMORPHONE
     Dosage: 6-8 MG, EVERY 2 HOURS, AS NEEDED
     Route: 048
  10. METHADONE [Suspect]
     Active Substance: METHADONE HYDROCHLORIDE
     Dosage: 40 MG, THRICE DAILY
     Route: 048
  11. GABAPENTIN. [Concomitant]
     Active Substance: GABAPENTIN
     Indication: BREAKTHROUGH PAIN
     Dosage: 300 MG, THRICE DAILY
     Route: 048
  12. METHADONE [Suspect]
     Active Substance: METHADONE HYDROCHLORIDE
     Indication: BREAKTHROUGH PAIN
     Dosage: 10 MG, THRICE DAILY
     Route: 048
  13. METHADONE [Suspect]
     Active Substance: METHADONE HYDROCHLORIDE
     Dosage: 50 MG, THRICE DAILY
     Route: 048
  14. MORPHINE [Suspect]
     Active Substance: MORPHINE
     Indication: BREAKTHROUGH PAIN
     Dosage: 150 MG, EVERY 8 HOURS
     Route: 048
  15. HYDROMORPHONE [Concomitant]
     Active Substance: HYDROMORPHONE
     Dosage: 0.5 MG, FOR EVERY 2 HOURS
     Route: 042
  16. HYDROMORPHONE [Concomitant]
     Active Substance: HYDROMORPHONE
     Dosage: 1 MG, FOR EVERY 2 HOURS, AS NEEDED (8 MG IN 24-HOUR)
     Route: 042
  17. HYDROMORPHONE [Concomitant]
     Active Substance: HYDROMORPHONE
     Dosage: 6 MG/HOUR
     Route: 042

REACTIONS (5)
  - Hallucination [Recovered/Resolved]
  - Myoclonus [Recovered/Resolved]
  - Neurotoxicity [Unknown]
  - Delirium [Recovered/Resolved]
  - Drug ineffective [Unknown]
